FAERS Safety Report 7006998-X (Version None)
Quarter: 2010Q3

REPORT INFORMATION
  Report Type: 
  Country: None (occurrence: None)
  Receive Date: 20100922
  Receipt Date: 20100917
  Transmission Date: 20110219
  Serious: No
  Sender: FDA-Public Use
  Company Number: US-TEVA-248919USA

PATIENT
  Sex: Male
  Weight: 74.91 kg

DRUGS (5)
  1. ALBUTEROL SULFATE AUTOHALER [Suspect]
     Indication: ASTHMA
     Dosage: 2 PUFF EVERY 5 MINUTES
     Route: 055
     Dates: start: 20080101
  2. FEXOFENADINE HCL [Concomitant]
  3. MONTELUKAST SODIUM [Concomitant]
  4. LISINOPRIL [Concomitant]
  5. AZITHROMYCIN [Concomitant]

REACTIONS (1)
  - BREATH ALCOHOL TEST POSITIVE [None]
